FAERS Safety Report 9789605 (Version 2)
Quarter: 2014Q1

REPORT INFORMATION
  Report Type: Report from Study
  Country: US (occurrence: US)
  Receive Date: 20131231
  Receipt Date: 20140224
  Transmission Date: 20141002
  Serious: Yes (Hospitalization)
  Sender: FDA-Public Use
  Company Number: US-ACTELION-A-NJ2013-92905

PATIENT
  Age: 73 Year
  Sex: Female

DRUGS (4)
  1. TRACLEER [Suspect]
     Indication: PULMONARY ARTERIAL HYPERTENSION
     Dosage: UNK
     Route: 048
  2. ASA [Concomitant]
     Dosage: 81 MG, UNK
  3. PLAVIX [Concomitant]
     Dosage: 75 MG, UNK
  4. LASIX [Concomitant]
     Dosage: 40 MG, UNK

REACTIONS (1)
  - Device malfunction [Unknown]
